FAERS Safety Report 6013476-3 (Version None)
Quarter: 2008Q4

REPORT INFORMATION
  Report Type: 
  Country: None (occurrence: None)
  Receive Date: 20081219
  Receipt Date: 20081208
  Transmission Date: 20090506
  Serious: Yes (Hospitalization, Other)
  Sender: FDA-Public Use
  Company Number: US-JNJFOC-20080805081

PATIENT
  Sex: Male
  Weight: 85.28 kg

DRUGS (5)
  1. REMICADE [Suspect]
     Dosage: 2ND EXPOSURE
     Route: 042
  2. REMICADE [Suspect]
     Dosage: 1ST EXPOSURE - LONGTERM
     Route: 042
  3. REMICADE [Suspect]
     Route: 042
  4. REMICADE [Suspect]
     Indication: RHEUMATOID ARTHRITIS
     Route: 042
  5. NSAIDS [Suspect]
     Indication: RHEUMATOID ARTHRITIS

REACTIONS (5)
  - GASTRIC CANCER [None]
  - INFUSION RELATED REACTION [None]
  - KNEE ARTHROPLASTY [None]
  - OESOPHAGEAL STENOSIS [None]
  - RENAL FAILURE CHRONIC [None]
